FAERS Safety Report 6555711-9 (Version None)
Quarter: 2010Q1

REPORT INFORMATION
  Report Type: 
  Country: None (occurrence: None)
  Receive Date: 20100128
  Receipt Date: 20100117
  Transmission Date: 20100710
  Serious: No
  Sender: FDA-Public Use
  Company Number: IL-ELI_LILLY_AND_COMPANY-IL200912006185

PATIENT
  Age: 63 Year
  Sex: Male

DRUGS (1)
  1. CYMBALTA [Suspect]
     Indication: NEURALGIA
     Dosage: 30 MG, UNKNOWN
     Route: 048
     Dates: start: 20090101

REACTIONS (3)
  - HEPATIC ENZYME INCREASED [None]
  - MEDICATION ERROR [None]
  - YELLOW SKIN [None]
